FAERS Safety Report 23618788 (Version 1)
Quarter: 2024Q1

REPORT INFORMATION
  Report Type: Spontaneous
  Country: CN (occurrence: CN)
  Receive Date: 20240311
  Receipt Date: 20240311
  Transmission Date: 20240409
  Serious: Yes (Other)
  Sender: FDA-Public Use
  Company Number: CN-PFIZER INC-PV202400033058

PATIENT
  Age: 8 Year
  Sex: Male
  Weight: 30 kg

DRUGS (1)
  1. ZITHROMAX [Suspect]
     Active Substance: AZITHROMYCIN DIHYDRATE
     Indication: Pneumonia
     Dosage: 0.29 G, 1X/DAY
     Route: 041
     Dates: start: 20240218, end: 20240219

REACTIONS (1)
  - Anaphylactoid reaction [Recovering/Resolving]

NARRATIVE: CASE EVENT DATE: 20240218
